FAERS Safety Report 6007083-6 (Version None)
Quarter: 2008Q4

REPORT INFORMATION
  Report Type: 
  Country: None (occurrence: None)
  Receive Date: 20081217
  Receipt Date: 20080108
  Transmission Date: 20090506
  Serious: No
  Sender: FDA-Public Use
  Company Number: US-ASTRAZENECA-2008UW00588

PATIENT
  Age: 82 Year
  Sex: Female
  Weight: 63.5 kg

DRUGS (3)
  1. CRESTOR [Suspect]
     Indication: BLOOD CHOLESTEROL INCREASED
     Route: 048
     Dates: start: 20080101
  2. VITAMINS [Concomitant]
  3. COENZYME Q10 [Concomitant]

REACTIONS (3)
  - ERYTHEMA [None]
  - ILL-DEFINED DISORDER [None]
  - PAIN [None]
